FAERS Safety Report 9758673 (Version 1)
Quarter: 2013Q4

REPORT INFORMATION
  Report Type: Spontaneous
  Country: US (occurrence: None)
  Receive Date: 20131216
  Receipt Date: 20131216
  Transmission Date: 20140711
  Serious: Yes (Other)
  Sender: FDA-Public Use
  Company Number: RB-49965-2013

PATIENT
  Age: 37 Year
  Sex: Female

DRUGS (2)
  1. SUBOXONE (8 MG, 8 MG) [Suspect]
     Indication: DRUG DEPENDENCE
     Dosage: (24 MG, SUBOXONE FILM SUBLINGUAL), (8 MG, SUBOXONE FILM SUBLINGUAL)
  2. ALPRENOLOL HYDROCHLORIDE [Concomitant]

REACTIONS (1)
  - Oedema peripheral [None]
